FAERS Safety Report 5676957-8 (Version None)
Quarter: 2008Q1

REPORT INFORMATION
  Report Type: 
  Country: None (occurrence: None)
  Receive Date: 20080324
  Receipt Date: 20080319
  Transmission Date: 20080703
  Serious: Yes (Hospitalization)
  Sender: FDA-Public Use
  Company Number: US-BRISTOL-MYERS SQUIBB COMPANY-14079230

PATIENT
  Age: 73 Year
  Sex: Male
  Weight: 113 kg

DRUGS (9)
  1. COUMADIN [Suspect]
     Indication: VASCULAR GRAFT
     Route: 048
     Dates: start: 20000101
  2. COUMADIN [Suspect]
     Indication: ATRIAL FIBRILLATION
     Route: 048
     Dates: start: 20000101
  3. ACCUPRIL [Concomitant]
     Dates: start: 20000101
  4. ALLOPURINOL [Concomitant]
     Dates: start: 20000101
  5. LASIX [Concomitant]
     Dates: start: 20000101
  6. POTASSIUM CHLORIDE [Concomitant]
     Dates: start: 20000101
  7. CARDIZEM CD [Concomitant]
     Dates: start: 20000101
  8. LIPITOR [Concomitant]
     Dates: start: 20000101
  9. TOPROL-XL [Concomitant]
     Dates: start: 20000101

REACTIONS (5)
  - ABASIA [None]
  - FALL [None]
  - INTERNATIONAL NORMALISED RATIO FLUCTUATION [None]
  - RECTAL HAEMORRHAGE [None]
  - RENAL HAEMORRHAGE [None]
